FAERS Safety Report 8665077 (Version 2)
Quarter: 2012Q4

REPORT INFORMATION
  Report Type: 
  Country: NL (occurrence: NL)
  Receive Date: 20120716
  Receipt Date: 20120907
  Transmission Date: 20130627
  Serious: Yes (Hospitalization)
  Sender: FDA-Public Use
  Company Number: NL-BIOGENIDEC-2012BI019882

PATIENT
  Sex: Male

DRUGS (8)
  1. AVONEX [Suspect]
     Indication: MULTIPLE SCLEROSIS
     Route: 030
     Dates: start: 20110120
  2. IBUPROFEN [Concomitant]
  3. MOVICOLON [Concomitant]
  4. OMEPRAZOL [Concomitant]
  5. PARACETAMOL [Concomitant]
  6. RIVOTRIL [Concomitant]
  7. LYRICA [Concomitant]
  8. XALACOM [Concomitant]

REACTIONS (3)
  - Multimorbidity [Unknown]
  - Neuralgia [Unknown]
  - Constipation [Unknown]
